FAERS Safety Report 9288605 (Version 1)
Quarter: 2013Q2

REPORT INFORMATION
  Report Type: Spontaneous
  Country: US (occurrence: None)
  Receive Date: 20130513
  Receipt Date: 20130513
  Transmission Date: 20140414
  Serious: Yes (Hospitalization)
  Sender: FDA-Public Use
  Company Number: None

PATIENT
  Age: 80 Year
  Sex: Male
  Weight: 70.5 kg

DRUGS (1)
  1. WARFARIN [Suspect]
     Indication: EMBOLISM
     Route: 048
     Dates: start: 20110113, end: 20130428

REACTIONS (5)
  - Haemorrhage [None]
  - Cough [None]
  - Wheezing [None]
  - Respiratory depression [None]
  - International normalised ratio increased [None]
